FAERS Safety Report 23241733 (Version 1)
Quarter: 2023Q4

REPORT INFORMATION
  Report Type: Spontaneous
  Country: US (occurrence: US)
  Receive Date: 20231129
  Receipt Date: 20231129
  Transmission Date: 20240110
  Serious: Yes (Death)
  Sender: FDA-Public Use
  Company Number: US-AMGEN-USASP2023210788

PATIENT
  Age: 76 Year
  Sex: Female

DRUGS (2)
  1. RITUXIMAB [Suspect]
     Active Substance: RITUXIMAB
     Indication: Glomerulonephritis
     Dosage: UNK
     Route: 065
  2. CYCLOPHOSPHAMIDE [Concomitant]
     Active Substance: CYCLOPHOSPHAMIDE
     Indication: Glomerulonephritis
     Dosage: UNK
     Route: 065

REACTIONS (3)
  - Respiratory failure [Fatal]
  - General physical health deterioration [Unknown]
  - Off label use [Unknown]
